FAERS Safety Report 11643000 (Version 2)
Quarter: 2015Q4

REPORT INFORMATION
  Report Type: Spontaneous
  Country: IT (occurrence: IT)
  Receive Date: 20151020
  Receipt Date: 20151104
  Transmission Date: 20160304
  Serious: Yes (Other)
  Sender: FDA-Public Use
  Company Number: IT-ROCHE-1647963

PATIENT
  Age: 26 Year
  Sex: Male

DRUGS (3)
  1. VALIUM [Suspect]
     Active Substance: DIAZEPAM
     Indication: DRUG ABUSE
     Dosage: 5 MG/ML ORAL DROPS, SOLUTION^ 20 ML BOTTLE
     Route: 048
     Dates: start: 20150819, end: 20150819
  2. TALOFEN [Suspect]
     Active Substance: PROMAZINE HYDROCHLORIDE
     Indication: DRUG ABUSE
     Dosage: 4 G / 100 ML ORAL DROPS, SOLUTION^ 30 ML BOTTLE
     Route: 048
     Dates: start: 20150819, end: 20150819
  3. TAVOR [Suspect]
     Active Substance: LORAZEPAM
     Indication: DRUG ABUSE
     Dosage: 2.5 MG TABLETS^ 20 TABLETS
     Route: 048
     Dates: start: 20150819, end: 20150819

REACTIONS (3)
  - Head injury [Recovering/Resolving]
  - Sopor [Recovering/Resolving]
  - Drug abuse [Unknown]

NARRATIVE: CASE EVENT DATE: 20150819
